FAERS Safety Report 16625935 (Version 2)
Quarter: 2019Q3

REPORT INFORMATION
  Report Type: Spontaneous
  Country: CA (occurrence: CA)
  Receive Date: 20190724
  Receipt Date: 20190730
  Transmission Date: 20191004
  Serious: Yes (Other)
  Sender: FDA-Public Use
  Company Number: US-PFIZER INC-2019312163

PATIENT
  Age: 45 Year
  Sex: Female

DRUGS (3)
  1. LIDOCAINE HCL [Suspect]
     Active Substance: LIDOCAINE HYDROCHLORIDE
     Dosage: 1 ML, UNK
     Route: 014
  2. LIDOCAINE HCL [Suspect]
     Active Substance: LIDOCAINE HYDROCHLORIDE
     Indication: LOCAL ANAESTHESIA
     Dosage: 1.5 ML, UNK
     Route: 058
  3. DEPO-MEDROL [Suspect]
     Active Substance: METHYLPREDNISOLONE ACETATE
     Dosage: 40 MG, UNK
     Route: 014

REACTIONS (7)
  - Syncope [Unknown]
  - Flushing [Unknown]
  - Cyanosis [Unknown]
  - Conjunctival hyperaemia [Unknown]
  - Dyspnoea [Unknown]
  - Complement factor decreased [Unknown]
  - Anaphylactic reaction [Unknown]
